FAERS Safety Report 24450445 (Version 3)
Quarter: 2024Q4

REPORT INFORMATION
  Report Type: Spontaneous
  Country: AU (occurrence: AU)
  Receive Date: 20241017
  Receipt Date: 20241108
  Transmission Date: 20250115
  Serious: Yes (Death, Other)
  Sender: CSL BEHRING
  Company Number: AU-BEH-2024182424

PATIENT
  Age: 62 Year
  Sex: Female
  Weight: 70.4 kg

DRUGS (14)
  1. HUMAN IMMUNOGLOBULIN G [Suspect]
     Active Substance: HUMAN IMMUNOGLOBULIN G
     Indication: Immunodeficiency common variable
     Dosage: 30 G ONCE ONLY
     Route: 042
     Dates: start: 20241012, end: 20241012
  2. HUMAN IMMUNOGLOBULIN G [Suspect]
     Active Substance: HUMAN IMMUNOGLOBULIN G
     Indication: Pneumonia
  3. HUMAN IMMUNOGLOBULIN G [Suspect]
     Active Substance: HUMAN IMMUNOGLOBULIN G
     Indication: Immunoglobulins decreased
  4. CEFUROXIME [Concomitant]
     Active Substance: CEFUROXIME
     Dosage: 500 MG, BID WITH FOOD
  5. CETIRIZINE HYDROCHLORIDE [Concomitant]
     Active Substance: CETIRIZINE HYDROCHLORIDE
     Indication: Prophylaxis
     Dosage: 10 MG, ONCE ONLY
     Route: 048
  6. OXYCODONE HYDROCHLORIDE [Concomitant]
     Active Substance: OXYCODONE HYDROCHLORIDE
     Dosage: 5 MG, ONCE ONLY
     Route: 048
  7. POTASSIUM [Concomitant]
     Active Substance: POTASSIUM
     Dosage: 2 DF, ONCE ONLY
     Route: 048
  8. POTASSIUM [Concomitant]
     Active Substance: POTASSIUM
     Dosage: 4 DF, ONCE ONLY
     Route: 048
  9. POTASSIUM [Concomitant]
     Active Substance: POTASSIUM
     Dosage: 3 DF, ONCE ONLY
     Route: 048
  10. ACETAMINOPHEN [Concomitant]
     Active Substance: ACETAMINOPHEN
     Dosage: 1 G, QID
     Route: 048
  11. PIPERACILLIN SODIUM\TAZOBACTAM SODIUM [Concomitant]
     Active Substance: PIPERACILLIN SODIUM\TAZOBACTAM SODIUM
     Dosage: 4 MG EVERY 8 HOURS
     Route: 042
  12. PIPERACILLIN SODIUM\TAZOBACTAM SODIUM [Concomitant]
     Active Substance: PIPERACILLIN SODIUM\TAZOBACTAM SODIUM
     Dosage: 4.5 G EVERY 8 HOURS
     Route: 042
  13. PIPERACILLIN [Concomitant]
     Active Substance: PIPERACILLIN
  14. TAZOBACTAM [Concomitant]
     Active Substance: TAZOBACTAM

REACTIONS (13)
  - Nausea [Fatal]
  - Bowel movement irregularity [Fatal]
  - Heart rate increased [Fatal]
  - Chest discomfort [Fatal]
  - Dyspnoea [Fatal]
  - Hypoxia [Fatal]
  - Vomiting [Fatal]
  - Feeling cold [Fatal]
  - Cold sweat [Fatal]
  - Chest pain [Fatal]
  - Headache [Fatal]
  - Blood pressure decreased [Fatal]
  - Chills [Fatal]

NARRATIVE: CASE EVENT DATE: 20241012
